FAERS Safety Report 12336488 (Version 1)
Quarter: 2016Q2

REPORT INFORMATION
  Report Type: Report from Study
  Country: AU (occurrence: AU)
  Receive Date: 20160505
  Receipt Date: 20160505
  Transmission Date: 20160815
  Serious: Yes (Other)
  Sender: FDA-Public Use
  Company Number: AU-ROCHE-1752007

PATIENT
  Age: 89 Year
  Sex: Female

DRUGS (8)
  1. PLAVIX [Concomitant]
     Active Substance: CLOPIDOGREL BISULFATE
  2. KARVEA [Concomitant]
     Active Substance: IRBESARTAN
  3. LIPIDIL [Concomitant]
     Active Substance: FENOFIBRATE
  4. RANIBIZUMAB [Suspect]
     Active Substance: RANIBIZUMAB
     Indication: NEOVASCULAR AGE-RELATED MACULAR DEGENERATION
     Route: 050
     Dates: start: 20070820
  5. PARIET [Concomitant]
     Active Substance: RABEPRAZOLE SODIUM
  6. RANIBIZUMAB [Suspect]
     Active Substance: RANIBIZUMAB
     Route: 050
     Dates: start: 20160408
  7. VASOCARDOL [Concomitant]
  8. PANADOL [Concomitant]
     Active Substance: ACETAMINOPHEN

REACTIONS (7)
  - Presbyopia [Recovered/Resolved]
  - Pain [Recovered/Resolved]
  - Eye pain [Recovered/Resolved]
  - Blepharitis [Recovered/Resolved]
  - Vitreous floaters [Unknown]
  - Dry eye [Recovered/Resolved]
  - Conjunctival haemorrhage [Recovered/Resolved]

NARRATIVE: CASE EVENT DATE: 20130911
